FAERS Safety Report 21976381 (Version 6)
Quarter: 2024Q2

REPORT INFORMATION
  Report Type: Spontaneous
  Country: US (occurrence: US)
  Receive Date: 20230210
  Receipt Date: 20240530
  Transmission Date: 20240716
  Serious: No
  Sender: FDA-Public Use
  Company Number: US-BRISTOL-MYERS SQUIBB COMPANY-2023-019636

PATIENT
  Age: 63 Year
  Sex: Female

DRUGS (1)
  1. REVLIMID [Suspect]
     Active Substance: LENALIDOMIDE
     Indication: Plasma cell myeloma
     Route: 048
     Dates: start: 201806

REACTIONS (6)
  - Product dose omission issue [Unknown]
  - Abdominal discomfort [Unknown]
  - Memory impairment [Unknown]
  - Nasopharyngitis [Unknown]
  - Product prescribing issue [Unknown]
  - Musculoskeletal pain [Unknown]

NARRATIVE: CASE EVENT DATE: 20230206
